FAERS Safety Report 8816749 (Version 2)
Quarter: 2013Q1

REPORT INFORMATION
  Report Type: Spontaneous
  Country: US (occurrence: None)
  Receive Date: 20121001
  Receipt Date: 20121101
  Transmission Date: 20140127
  Serious: Yes (Other)
  Sender: FDA-Public Use
  Company Number: US-1194327

PATIENT
  Age: 73 Year
  Sex: Female
  Weight: 42.64 kg

DRUGS (3)
  1. TRAVATAN [Suspect]
     Indication: GLAUCOMA
     Dosage: (1 GTT QD OU OPHTHALMIC)
     Route: 047
     Dates: start: 2000
  2. AZOPT [Suspect]
     Indication: GLAUCOMA
     Dosage: (1 GTT BID OU OPHTHALMIC)
     Route: 047
     Dates: start: 2011
  3. COMBIGAN [Concomitant]

REACTIONS (2)
  - Corneal thinning [None]
  - Iris hypopigmentation [None]
